FAERS Safety Report 4526025-3 (Version None)
Quarter: 2004Q4

REPORT INFORMATION
  Report Type: 
  Country: None (occurrence: None)
  Receive Date: 20041129
  Receipt Date: 20040913
  Transmission Date: 20050328
  Serious: Yes (Death)
  Sender: FDA-Public Use
  Company Number: USA040978139

PATIENT
  Age: 38 Year
  Sex: Male

DRUGS (7)
  1. ZYPREXA [Suspect]
     Dosage: 10 MG
  2. LIPITOR  (TORVASTATIN [Concomitant]
  3. ACTOS [Concomitant]
  4. GLUCOVANCE [Concomitant]
  5. LISINOPRIL 9LISINOPRIL) [Concomitant]
  6. COUMADIN [Concomitant]
  7. ESKALITH [Concomitant]

REACTIONS (1)
  - CARDIAC FAILURE CONGESTIVE [None]
